FAERS Safety Report 19583784 (Version 4)
Quarter: 2025Q3

REPORT INFORMATION
  Report Type: Report from Study
  Country: US (occurrence: US)
  Receive Date: 20210720
  Receipt Date: 20250916
  Transmission Date: 20251020
  Serious: Yes (Other)
  Sender: ASTELLAS
  Company Number: US-ASTELLAS-2021US023990

PATIENT
  Age: 69 Year
  Sex: Male

DRUGS (4)
  1. ENZALUTAMIDE [Suspect]
     Active Substance: ENZALUTAMIDE
     Indication: Product used for unknown indication
     Dosage: 160 MG (4 TABLETS), ONCE DAILY
     Route: 048
  2. ENZALUTAMIDE [Interacting]
     Active Substance: ENZALUTAMIDE
     Indication: Prostate cancer
     Route: 048
     Dates: start: 20210514
  3. LUPRON [Suspect]
     Active Substance: LEUPROLIDE ACETATE
     Indication: Product used for unknown indication
     Route: 065
  4. TADALAFIL [Interacting]
     Active Substance: TADALAFIL
     Indication: Product used for unknown indication
     Route: 065

REACTIONS (11)
  - Erectile dysfunction [Unknown]
  - Mood swings [Recovered/Resolved]
  - Nocturia [Not Recovered/Not Resolved]
  - Insomnia [Not Recovered/Not Resolved]
  - Anxiety [Unknown]
  - Depression [Unknown]
  - Fatigue [Unknown]
  - Urinary tract infection [Unknown]
  - Hot flush [Unknown]
  - Drug interaction [Unknown]
  - Mood swings [Unknown]

NARRATIVE: CASE EVENT DATE: 20210101
